FAERS Safety Report 18818081 (Version 12)
Quarter: 2021Q3

REPORT INFORMATION
  Report Type: Report from Study
  Country: HN (occurrence: HN)
  Receive Date: 20210201
  Receipt Date: 20210819
  Transmission Date: 20211014
  Serious: Yes (Hospitalization, Other)
  Sender: FDA-Public Use
  Company Number: NVSC2021HN012828

PATIENT
  Age: 39 Year
  Sex: Female
  Weight: 50.34 kg

DRUGS (9)
  1. PANTOPRAZOLE [Concomitant]
     Active Substance: PANTOPRAZOLE
     Indication: GASTROINTESTINAL DISORDER PROPHYLAXIS
     Dosage: UNK, UNKNOWN
     Route: 065
  2. ARAVA [Concomitant]
     Active Substance: LEFLUNOMIDE
     Indication: PRODUCT USED FOR UNKNOWN INDICATION
     Dosage: 20 MG, QD
     Route: 065
  3. SECUKINUMAB. [Suspect]
     Active Substance: SECUKINUMAB
     Indication: PSORIASIS
     Dosage: 300 MG, QMO (BENEATH THE SKIN USUALLY VIA SKIN)
     Route: 058
  4. REUMON [Concomitant]
     Indication: PRODUCT USED FOR UNKNOWN INDICATION
     Dosage: UNK
     Route: 065
  5. SECUKINUMAB. [Suspect]
     Active Substance: SECUKINUMAB
     Indication: PSORIATIC ARTHROPATHY
     Dosage: 300 MG, QMO
     Route: 058
     Dates: start: 20210114
  6. FOLIC ACID. [Concomitant]
     Active Substance: FOLIC ACID
     Indication: PRODUCT USED FOR UNKNOWN INDICATION
     Dosage: 1 DF, QD
     Route: 065
  7. DEFAXINA [Concomitant]
     Indication: DYSARTHRIA
     Dosage: 7.5 MG, QD
     Route: 065
     Dates: start: 20210106
  8. IRON [Concomitant]
     Active Substance: IRON
     Indication: PRODUCT USED FOR UNKNOWN INDICATION
     Dosage: 1 DF, QD
     Route: 065
  9. METHOTREXATE. [Suspect]
     Active Substance: METHOTREXATE
     Indication: PRODUCT USED FOR UNKNOWN INDICATION
     Dosage: 2 DF (SATURDAY AND SUNDAY)
     Route: 065

REACTIONS (62)
  - Urinary tract infection [Recovering/Resolving]
  - Anaemia [Unknown]
  - Limb discomfort [Unknown]
  - Nervousness [Unknown]
  - Urticaria [Unknown]
  - Toxoplasmosis [Recovering/Resolving]
  - Vision blurred [Recovering/Resolving]
  - Neurosyphilis [Recovering/Resolving]
  - Stress [Recovering/Resolving]
  - Feeling abnormal [Unknown]
  - Nasal septum deviation [Unknown]
  - Ocular hyperaemia [Unknown]
  - Eye swelling [Unknown]
  - Psoriasis [Not Recovered/Not Resolved]
  - Erythema [Unknown]
  - Rheumatoid factor positive [Unknown]
  - C-reactive protein decreased [Unknown]
  - Jaw disorder [Unknown]
  - Insomnia [Unknown]
  - Fear [Unknown]
  - Eye irritation [Unknown]
  - Gait inability [Not Recovered/Not Resolved]
  - Lip pain [Not Recovered/Not Resolved]
  - Tachycardia [Unknown]
  - Ear pain [Unknown]
  - Blood glucose decreased [Unknown]
  - Pain [Unknown]
  - Inflammation [Not Recovered/Not Resolved]
  - Abdominal discomfort [Unknown]
  - Headache [Unknown]
  - Palpitations [Unknown]
  - Arthritis [Unknown]
  - Asthenia [Unknown]
  - Blindness [Unknown]
  - Concomitant disease aggravated [Not Recovered/Not Resolved]
  - Head discomfort [Unknown]
  - Dizziness [Unknown]
  - Muscle rigidity [Not Recovered/Not Resolved]
  - Discouragement [Unknown]
  - Ear disorder [Unknown]
  - Gait disturbance [Not Recovered/Not Resolved]
  - Drug ineffective [Unknown]
  - Haemoglobin decreased [Unknown]
  - Eye inflammation [Recovering/Resolving]
  - Asthenopia [Unknown]
  - Red blood cell sedimentation rate increased [Unknown]
  - Malaise [Not Recovered/Not Resolved]
  - Anxiety [Unknown]
  - Pain in extremity [Not Recovered/Not Resolved]
  - Eye disorder [Recovering/Resolving]
  - Facial paralysis [Unknown]
  - Visual impairment [Not Recovered/Not Resolved]
  - White blood cell count increased [Unknown]
  - Arthralgia [Unknown]
  - Fatigue [Unknown]
  - Optic nerve disorder [Unknown]
  - Back pain [Not Recovered/Not Resolved]
  - Alopecia [Unknown]
  - Neck pain [Unknown]
  - Musculoskeletal discomfort [Unknown]
  - Hyperhidrosis [Unknown]
  - Body temperature increased [Unknown]

NARRATIVE: CASE EVENT DATE: 202101
